FAERS Safety Report 21987495 (Version 3)
Quarter: 2023Q2

REPORT INFORMATION
  Report Type: Spontaneous
  Country: US (occurrence: US)
  Receive Date: 20230214
  Receipt Date: 20230504
  Transmission Date: 20230721
  Serious: No
  Sender: FDA-Public Use
  Company Number: US-BIOGEN-2023BI01187385

PATIENT
  Sex: Female

DRUGS (1)
  1. TYSABRI [Suspect]
     Active Substance: NATALIZUMAB
     Indication: Multiple sclerosis
     Route: 050
     Dates: start: 20100921

REACTIONS (4)
  - Fibromyalgia [Not Recovered/Not Resolved]
  - Memory impairment [Unknown]
  - Central nervous system lesion [Unknown]
  - Aphasia [Unknown]
